FAERS Safety Report 12762271 (Version 1)
Quarter: 2016Q3

REPORT INFORMATION
  Report Type: Spontaneous
  Country: GB (occurrence: GB)
  Receive Date: 20160920
  Receipt Date: 20160920
  Transmission Date: 20161109
  Serious: Yes (Other)
  Sender: FDA-Public Use
  Company Number: GB-TEVA-692694ACC

PATIENT
  Age: 35 Year
  Sex: Male
  Weight: 75 kg

DRUGS (8)
  1. LANTUS [Concomitant]
     Active Substance: INSULIN GLARGINE
     Dosage: USE AS DIRECTED
     Dates: start: 20131205
  2. NAPROXEN. [Concomitant]
     Active Substance: NAPROXEN
     Dosage: 2 DOSAGE FORMS DAILY;
     Dates: start: 20160704, end: 20160718
  3. CO-AMOXICLAV [Concomitant]
     Active Substance: AMOXICILLIN\CLAVULANIC ACID
     Dosage: 3 DOSAGE FORMS DAILY;
     Dates: start: 20160616, end: 20160623
  4. FENBID [Concomitant]
     Active Substance: IBUPROFEN
     Dosage: 3 DOSAGE FORMS DAILY;
     Dates: start: 20160830
  5. PARACETAMOL [Concomitant]
     Active Substance: ACETAMINOPHEN
     Indication: PAIN
     Dosage: 8 DOSAGE FORMS DAILY;
     Dates: start: 20160616, end: 20160628
  6. DULOXETINE. [Suspect]
     Active Substance: DULOXETINE
     Dates: start: 20160830
  7. GABAPENTIN. [Concomitant]
     Active Substance: GABAPENTIN
     Dosage: TAKE ONE 3 TIMES/DAY FOR TEN DAYS THEN TWO 3
     Dates: start: 20160830
  8. HUMALOG [Concomitant]
     Active Substance: INSULIN LISPRO
     Dosage: USE AS DIRECTED
     Dates: start: 20160420

REACTIONS (1)
  - Oliguria [Recovering/Resolving]

NARRATIVE: CASE EVENT DATE: 20160830
